FAERS Safety Report 8350070 (Version 2)
Quarter: 2016Q3

REPORT INFORMATION
  Report Type: Spontaneous
  Country: BR (occurrence: BR)
  Receive Date: 20120124
  Receipt Date: 20160713
  Transmission Date: 20161109
  Serious: No
  Sender: FDA-Public Use
  Company Number: BR-AMGEN-BRASP2011058936

PATIENT
  Age: 56 Year
  Sex: Male
  Weight: 68 kg

DRUGS (4)
  1. CORTICORTEN [Concomitant]
     Dosage: UNK
  2. PREDNISONE. [Concomitant]
     Active Substance: PREDNISONE
     Dosage: 5 MG, UNK
  3. DICLOFENAC [Concomitant]
     Active Substance: DICLOFENAC
  4. ENBREL [Suspect]
     Active Substance: ETANERCEPT
     Indication: RHEUMATOID ARTHRITIS
     Dosage: 50 MG, 1X/WEEK
     Route: 058
     Dates: start: 200911

REACTIONS (4)
  - Blood pressure decreased [Recovered/Resolved]
  - Anxiety [Unknown]
  - Injection site pain [Unknown]
  - Needle issue [Unknown]

NARRATIVE: CASE EVENT DATE: 2011
